FAERS Safety Report 19569441 (Version 1)
Quarter: 2021Q3

REPORT INFORMATION
  Report Type: Spontaneous
  Country: GB (occurrence: GB)
  Receive Date: 20210716
  Receipt Date: 20210716
  Transmission Date: 20211014
  Serious: Yes (Other)
  Sender: FDA-Public Use
  Company Number: GB-PFIZER INC-2021829365

PATIENT
  Age: 73 Year
  Sex: Male
  Weight: 82 kg

DRUGS (13)
  1. FERROUS SULFATE. [Concomitant]
     Active Substance: FERROUS SULFATE
     Indication: ILL-DEFINED DISORDER
     Dosage: 1 DF, 3X/DAY (TAKE ONE 3 TIMES/DAY)
     Dates: start: 20210324
  2. VISCOTEARS [Concomitant]
     Active Substance: CARBOMER
     Indication: ILL-DEFINED DISORDER
     Dosage: PUT ONE DROP INTO BOTH EYES WHEN NECESSARY, AS NEEDED
     Dates: start: 20210324
  3. TAMSULOSIN HYDROCHLORIDE. [Concomitant]
     Active Substance: TAMSULOSIN HYDROCHLORIDE
     Indication: ILL-DEFINED DISORDER
     Dosage: 1 DF, DAILY (TAKE ONE DAILY)
     Dates: start: 20210324
  4. FOLIC ACID. [Concomitant]
     Active Substance: FOLIC ACID
     Indication: ILL-DEFINED DISORDER
     Dosage: 1 DF, DAILY (TAKE ONE DAILY)
     Dates: start: 20210401, end: 20210429
  5. ACIDEX [CALCIUM CARBONATE;SODIUM ALGINATE;SODIUM BICARBONATE] [Concomitant]
     Active Substance: CALCIUM CARBONATE\SODIUM ALGINATE\SODIUM BICARBONATE
     Indication: ILL-DEFINED DISORDER
     Dosage: 2X5ML SPOON 4 TIMES/DAY, 4X/DAY
     Dates: start: 20210324
  6. RAMIPRIL. [Concomitant]
     Active Substance: RAMIPRIL
     Indication: ILL-DEFINED DISORDER
     Dosage: 1 DF, DAILY (TAKE ONE DAILY)
     Dates: start: 20210324
  7. SULFASALAZINE. [Suspect]
     Active Substance: SULFASALAZINE
     Indication: ILL-DEFINED DISORDER
     Dosage: 1.5 G, 2X/DAY
     Dates: start: 20210519
  8. GLYCERYL TRINITRATE [Concomitant]
     Active Substance: NITROGLYCERIN
     Indication: ILL-DEFINED DISORDER
     Dosage: ONE PUFF, AS NEEDED
     Dates: start: 20210324
  9. ASPIRIN [ACETYLSALICYLIC ACID] [Concomitant]
     Active Substance: ASPIRIN
     Indication: ILL-DEFINED DISORDER
     Dosage: 1 DF, DAILY (TAKE ONE DAILY)
     Dates: start: 20210324
  10. EZETIMIBE. [Concomitant]
     Active Substance: EZETIMIBE
     Indication: ILL-DEFINED DISORDER
     Dosage: 1 DF, DAILY (TAKE ONE DAILY)
     Dates: start: 20210324
  11. OMEPRAZOLE. [Concomitant]
     Active Substance: OMEPRAZOLE
     Indication: ILL-DEFINED DISORDER
     Dosage: 1 DF, 2X/DAY (TAKE ONE CAPSULE TWICE DAILY)
     Dates: start: 20210324
  12. COCODAMOL [Concomitant]
     Active Substance: ACETAMINOPHEN\CODEINE PHOSPHATE
     Indication: ILL-DEFINED DISORDER
     Dosage: 2 FOUR TIMES DAY AS REQUIRED, AS NEEDED
     Dates: start: 20210324
  13. PREDNISOLONE. [Concomitant]
     Active Substance: PREDNISOLONE
     Indication: ILL-DEFINED DISORDER
     Dosage: REDUCING REGIME
     Dates: start: 20210415

REACTIONS (5)
  - Gastrointestinal disorder [Recovered/Resolved]
  - Nausea [Unknown]
  - Dizziness [Unknown]
  - Diarrhoea [Unknown]
  - Off label use [Unknown]

NARRATIVE: CASE EVENT DATE: 20210519
